FAERS Safety Report 4519957-3 (Version None)
Quarter: 2004Q4

REPORT INFORMATION
  Report Type: 
  Country: None (occurrence: None)
  Receive Date: 20041207
  Receipt Date: 20041123
  Transmission Date: 20050328
  Serious: Yes (Hospitalization)
  Sender: FDA-Public Use
  Company Number: US-MERCK-0411USA04134

PATIENT
  Age: 43 Year
  Sex: Female

DRUGS (1)
  1. CUPRIMINE [Suspect]
     Route: 048
     Dates: start: 20040101, end: 20040101

REACTIONS (2)
  - CHOLESTASIS [None]
  - PNEUMONIA PNEUMOCOCCAL [None]
